FAERS Safety Report 6010646-5 (Version None)
Quarter: 2008Q4

REPORT INFORMATION
  Report Type: 
  Country: None (occurrence: None)
  Receive Date: 20081218
  Receipt Date: 20081215
  Transmission Date: 20090506
  Serious: Yes (Hospitalization)
  Sender: FDA-Public Use
  Company Number: FR-WYE-G02794808

PATIENT
  Sex: Male

DRUGS (5)
  1. TAZOCILLINE [Suspect]
     Indication: DIABETIC FOOT INFECTION
     Dosage: UNKNOWN
     Route: 042
     Dates: start: 20080922
  2. FORTUM [Interacting]
     Indication: DIABETIC FOOT INFECTION
     Route: 042
     Dates: start: 20080922, end: 20080923
  3. FORTUM [Interacting]
     Dosage: 2 G TOTAL DAILY
     Route: 042
     Dates: start: 20080924, end: 20080924
  4. CIPROFLOXACIN HCL [Interacting]
     Indication: DIABETIC FOOT INFECTION
     Dosage: UNKNOWN
     Route: 042
     Dates: start: 20080922
  5. PREVISCAN [Interacting]
     Indication: ATRIAL FIBRILLATION
     Route: 048
     Dates: start: 20070101, end: 20080925

REACTIONS (2)
  - DRUG INTERACTION [None]
  - INTERNATIONAL NORMALISED RATIO INCREASED [None]
